FAERS Safety Report 18471952 (Version 1)
Quarter: 2020Q4

REPORT INFORMATION
  Report Type: Spontaneous
  Country: DE (occurrence: DE)
  Receive Date: 20201106
  Receipt Date: 20201106
  Transmission Date: 20210114
  Serious: Yes (Hospitalization)
  Sender: FDA-Public Use
  Company Number: DE-ACCORD-207441

PATIENT
  Age: 79 Year
  Sex: Male

DRUGS (13)
  1. RAMIPRIL. [Suspect]
     Active Substance: RAMIPRIL
     Indication: PRODUCT USED FOR UNKNOWN INDICATION
     Dosage: 2.5 MG, 0-0-0.5-0, TABLET
     Route: 048
  2. FUROSEMIDE/SPIRONOLACTONE [Suspect]
     Active Substance: FUROSEMIDE\SPIRONOLACTONE
     Indication: PRODUCT USED FOR UNKNOWN INDICATION
     Dosage: 20/50 MG, 0.5-0-0-0, TABLET
     Route: 048
  3. OPIPRAMOL/OPIPRAMOL HYDROCHLORIDE [Concomitant]
     Active Substance: OPIPRAMOL\OPIPRAMOL HYDROCHLORIDE
     Dosage: 50 MG, 1-1-1-0, TABLET
     Route: 048
  4. TORASEMIDE [Suspect]
     Active Substance: TORSEMIDE
     Indication: PRODUCT USED FOR UNKNOWN INDICATION
     Dosage: 10 MG, 1-0-0-0, TABLET
     Route: 048
  5. FOLATE SODIUM/FOLIC ACID [Concomitant]
     Active Substance: FOLIC ACID
     Dosage: 5 MG, 0-1-0-0, TABLET
     Route: 048
  6. MIRTAZAPINE. [Suspect]
     Active Substance: MIRTAZAPINE
     Indication: PRODUCT USED FOR UNKNOWN INDICATION
     Dosage: 30 MG, 0-0-0.5-0.5, TABLET
     Route: 048
  7. METOPROLOL. [Concomitant]
     Active Substance: METOPROLOL
     Dosage: 23.75 MG, 1-0-0-0, TABLET
     Route: 048
  8. QUETIAPINE. [Suspect]
     Active Substance: QUETIAPINE
     Indication: PRODUCT USED FOR UNKNOWN INDICATION
     Dosage: 25 MG, 0-0-0-1, TABLET
     Route: 048
  9. CINNARIZINE\DIMENHYDRINATE [Suspect]
     Active Substance: CINNARIZINE\DIMENHYDRINATE
     Indication: PRODUCT USED FOR UNKNOWN INDICATION
     Dosage: 20/40 MG, 1-1-1-0, TABLET
     Route: 048
  10. TAMSULOSIN/TAMSULOSIN HYDROCHLORIDE [Concomitant]
     Active Substance: TAMSULOSIN HYDROCHLORIDE
     Dosage: 0.4 MG, 1-0-0-0, PROLONGED-RELEASE CAPSULE
     Route: 048
  11. LACTULOSE. [Concomitant]
     Active Substance: LACTULOSE
     Dosage: 20 ML, 1-0-0-0, SYRUP
     Route: 048
  12. PHENPROCOUMON [Concomitant]
     Active Substance: PHENPROCOUMON
     Dosage: 3 MG, BY VALUE, TABLET
     Route: 048
  13. COLECALCIFEROL [Concomitant]
     Active Substance: CHOLECALCIFEROL
     Dosage: 1000 IE, 0-1-0-0, TABLET
     Route: 048

REACTIONS (6)
  - Dehydration [Unknown]
  - Condition aggravated [Unknown]
  - Hypotension [Unknown]
  - Depressed level of consciousness [Unknown]
  - Loss of consciousness [Unknown]
  - Chills [Unknown]
